FAERS Safety Report 17164555 (Version 2)
Quarter: 2020Q1

REPORT INFORMATION
  Report Type: Report from Study
  Country: US (occurrence: US)
  Receive Date: 20191217
  Receipt Date: 20200118
  Transmission Date: 20200409
  Serious: No
  Sender: FDA-Public Use
  Company Number: NVSC2019US071745

PATIENT
  Age: 46 Year
  Sex: Female

DRUGS (1)
  1. MAYZENT [Suspect]
     Active Substance: SIPONIMOD
     Indication: PRODUCT USED FOR UNKNOWN INDICATION
     Dosage: 1 MG, QD
     Route: 048
     Dates: start: 20191114

REACTIONS (3)
  - Cerebral disorder [Unknown]
  - Stress [Unknown]
  - Product dispensing error [Unknown]

NARRATIVE: CASE EVENT DATE: 20191218
